FAERS Safety Report 20576491 (Version 1)
Quarter: 2022Q1

REPORT INFORMATION
  Report Type: Spontaneous
  Country: US (occurrence: US)
  Receive Date: 20220310
  Receipt Date: 20220310
  Transmission Date: 20220423
  Serious: Yes (Other)
  Sender: FDA-Public Use
  Company Number: US-STRIDES ARCOLAB LIMITED-2021SP030948

PATIENT
  Age: 19 Year
  Sex: Female

DRUGS (3)
  1. AZATHIOPRINE [Suspect]
     Active Substance: AZATHIOPRINE
     Indication: Crohn^s disease
     Dosage: UNK, BID, WEIGHT-BASED AZATHIOPRINE; STARTED ONE YEAR PRIOR TO THE CURRENT PRESENTATION
     Route: 065
  2. PREDNISOLONE [Suspect]
     Active Substance: PREDNISOLONE
     Indication: Enteritis
     Dosage: 40 MILLIGRAM DAILY
     Route: 065
  3. ADALIMUMAB [Suspect]
     Active Substance: ADALIMUMAB
     Indication: Crohn^s disease
     Dosage: UNK, RECEIVED FOR 7 YEARS WEEKLY
     Route: 065

REACTIONS (2)
  - Histoplasmosis disseminated [Unknown]
  - Treatment failure [Unknown]
